FAERS Safety Report 5155107-0 (Version None)
Quarter: 2006Q4

REPORT INFORMATION
  Report Type: 
  Country: None (occurrence: None)
  Receive Date: 20061121
  Receipt Date: 20060818
  Transmission Date: 20070319
  Serious: Yes (Death, Life-Threatening, Hospitalization)
  Sender: FDA-Public Use
  Company Number: PHHO2006JP13688

PATIENT
  Age: 57 Year
  Sex: Male
  Weight: 55 kg

DRUGS (3)
  1. GLEEVEC [Suspect]
     Indication: GASTROINTESTINAL STROMAL TUMOUR
     Dosage: 400 MG, QD
     Route: 048
     Dates: start: 20040909, end: 20040928
  2. GLEEVEC [Suspect]
     Dosage: 400 MG, QD
     Route: 048
     Dates: start: 20050727, end: 20050731
  3. GLEEVEC [Suspect]
     Dosage: 300 MG, QD
     Route: 048
     Dates: start: 20050825, end: 20051208

REACTIONS (12)
  - DECREASED APPETITE [None]
  - DIARRHOEA [None]
  - FACE OEDEMA [None]
  - ILEUS [None]
  - LUNG OPERATION [None]
  - MALIGNANT NEOPLASM PROGRESSION [None]
  - MELAENA [None]
  - METASTASES TO LIVER [None]
  - METASTASES TO LUNG [None]
  - PAIN IN EXTREMITY [None]
  - PELVIC NEOPLASM [None]
  - RASH [None]
